FAERS Safety Report 9373153 (Version 1)
Quarter: 2013Q2

REPORT INFORMATION
  Report Type: Spontaneous
  Country: GB (occurrence: GB)
  Receive Date: 20130627
  Receipt Date: 20130627
  Transmission Date: 20140414
  Serious: Yes (Other)
  Sender: FDA-Public Use
  Company Number: GB-PFIZER INC-2013186833

PATIENT
  Sex: Male

DRUGS (1)
  1. DALACIN [Suspect]
     Dosage: 1.2 G, UNK

REACTIONS (1)
  - Hallucination [Unknown]
